FAERS Safety Report 7234275-0 (Version None)
Quarter: 2011Q1

REPORT INFORMATION
  Report Type: 
  Country: None (occurrence: None)
  Receive Date: 20110119
  Receipt Date: 20110111
  Transmission Date: 20110831
  Serious: Yes (Other)
  Sender: FDA-Public Use
  Company Number: JP-ROCHE-746646

PATIENT
  Sex: Female
  Weight: 64 kg

DRUGS (25)
  1. ACTEMRA [Suspect]
     Indication: RHEUMATOID ARTHRITIS
     Route: 041
     Dates: start: 20091113, end: 20091113
  2. ACTEMRA [Suspect]
     Route: 041
     Dates: start: 20100108, end: 20100108
  3. ACTEMRA [Suspect]
     Route: 041
     Dates: start: 20100205, end: 20100205
  4. PREDNISOLONE SODIUM SUCCINATE INJ [Concomitant]
     Route: 042
     Dates: start: 20100402, end: 20100402
  5. SIMVASTATIN [Concomitant]
     Dosage: FORM: PER ORAL AGENT
     Route: 048
  6. NORVASC [Concomitant]
     Dosage: FORM: PER ORAL AGENT
     Route: 048
  7. KENTAN [Concomitant]
     Route: 048
     Dates: end: 20100827
  8. ACTEMRA [Suspect]
     Route: 041
     Dates: start: 20100305, end: 20100305
  9. ACTEMRA [Suspect]
     Route: 041
     Dates: start: 20100402, end: 20100402
  10. PREDONINE [Concomitant]
     Dosage: FORM: PER ORAL AGENT
     Route: 048
  11. PREDNISOLONE SODIUM SUCCINATE INJ [Concomitant]
     Route: 042
     Dates: start: 20100305, end: 20100305
  12. BONALON [Concomitant]
     Route: 048
     Dates: start: 20070112, end: 20100827
  13. PREDNISOLONE SODIUM SUCCINATE INJ [Concomitant]
     Route: 042
     Dates: start: 20091113, end: 20091113
  14. PREDNISOLONE SODIUM SUCCINATE INJ [Concomitant]
     Route: 042
     Dates: start: 20100108, end: 20100108
  15. ACTEMRA [Suspect]
     Route: 041
     Dates: start: 20100430, end: 20100730
  16. PREDNISOLONE SODIUM SUCCINATE INJ [Concomitant]
     Route: 042
     Dates: start: 20091211, end: 20091211
  17. PREDNISOLONE SODIUM SUCCINATE INJ [Concomitant]
     Route: 042
     Dates: start: 20100205, end: 20100205
  18. ACTONEL [Concomitant]
     Dosage: FORM: PER ORAL AGENT
     Route: 048
  19. ACTEMRA [Suspect]
     Route: 041
     Dates: start: 20091211, end: 20091211
  20. METOLATE [Concomitant]
     Dosage: FORM: PER ORAL AGENT
     Route: 048
  21. FOLIAMIN [Concomitant]
     Route: 048
     Dates: end: 20100827
  22. SIMVASTATIN [Concomitant]
     Route: 048
     Dates: end: 20100827
  23. TEPRENONE [Concomitant]
     Route: 048
     Dates: end: 20100827
  24. LOXONIN [Concomitant]
     Dosage: FORM: PER ORAL AGENT
     Route: 048
  25. SELBEX [Concomitant]
     Dosage: FORM: PER ORAL AGENT
     Route: 048

REACTIONS (2)
  - LYMPHOMA [None]
  - DIABETES MELLITUS [None]
